FAERS Safety Report 18955728 (Version 2)
Quarter: 2021Q2

REPORT INFORMATION
  Report Type: Spontaneous
  Country: US (occurrence: US)
  Receive Date: 20210301
  Receipt Date: 20210412
  Transmission Date: 20210717
  Serious: No
  Sender: FDA-Public Use
  Company Number: US-PFIZER INC-2021198312

PATIENT
  Age: 59 Year
  Sex: Female
  Weight: 91.16 kg

DRUGS (1)
  1. GEODON [Suspect]
     Active Substance: ZIPRASIDONE HYDROCHLORIDE\ZIPRASIDONE MESYLATE
     Indication: BIPOLAR DISORDER
     Dosage: 20 MG (20MG X 5)
     Dates: start: 2001

REACTIONS (4)
  - Gastrooesophageal reflux disease [Unknown]
  - Laryngitis [Unknown]
  - Aphonia [Unknown]
  - Hiatus hernia [Unknown]
